FAERS Safety Report 7198010-7 (Version None)
Quarter: 2010Q4

REPORT INFORMATION
  Report Type: 
  Country: None (occurrence: None)
  Receive Date: 20101227
  Receipt Date: 20101215
  Transmission Date: 20110411
  Serious: Yes (Other)
  Sender: FDA-Public Use
  Company Number: US-BAYER-2010-006252

PATIENT
  Age: 35 Year
  Sex: Female

DRUGS (1)
  1. MIRENA [Suspect]
     Indication: CONTRACEPTION
     Dosage: 20 A?G/D, CONT
     Route: 015
     Dates: start: 20100504, end: 20101109

REACTIONS (2)
  - DEVICE EXPULSION [None]
  - LOOP ELECTROSURGICAL EXCISION PROCEDURE [None]
